FAERS Safety Report 12678962 (Version 1)
Quarter: 2016Q3

REPORT INFORMATION
  Report Type: Spontaneous
  Country: AT (occurrence: AT)
  Receive Date: 20160824
  Receipt Date: 20160824
  Transmission Date: 20161109
  Serious: Yes (Hospitalization)
  Sender: FDA-Public Use
  Company Number: AT-HORIZON-VIM-0192-2016

PATIENT
  Sex: Female
  Weight: 52 kg

DRUGS (2)
  1. VIMOVO [Suspect]
     Active Substance: ESOMEPRAZOLE MAGNESIUM\NAPROXEN
     Indication: SPONDYLITIS
     Dosage: 500MG/20 MG, AS REQUIRED
     Route: 048
     Dates: start: 201506
  2. SIMPONI [Concomitant]
     Active Substance: GOLIMUMAB
     Indication: SPONDYLITIS
     Route: 058
     Dates: start: 201506

REACTIONS (2)
  - Hyponatraemia [Recovered/Resolved]
  - Water intoxication [Recovered/Resolved]

NARRATIVE: CASE EVENT DATE: 20160629
